FAERS Safety Report 10936250 (Version 1)
Quarter: 2015Q1

REPORT INFORMATION
  Report Type: Spontaneous
  Country: US (occurrence: None)
  Receive Date: 20150319
  Receipt Date: 20150319
  Transmission Date: 20150721
  Serious: No
  Sender: FDA-Public Use
  Company Number: None

PATIENT
  Age: 60 Year
  Sex: Male

DRUGS (9)
  1. ENBREL [Suspect]
     Active Substance: ETANERCEPT
     Indication: RHEUMATOID ARTHRITIS
     Route: 058
     Dates: start: 20090630
  2. VITAMIN D [Concomitant]
     Active Substance: CHOLECALCIFEROL
  3. CRESTOR [Concomitant]
     Active Substance: ROSUVASTATIN CALCIUM
  4. POTASSIUM [Concomitant]
     Active Substance: POTASSIUM
  5. TRAZODONE [Concomitant]
     Active Substance: TRAZODONE HYDROCHLORIDE
  6. GLUCOSAMINE [Concomitant]
     Active Substance: GLUCOSAMINE
  7. LISINOPRIL. [Concomitant]
     Active Substance: LISINOPRIL
  8. CLARITIN [Concomitant]
     Active Substance: LORATADINE
  9. MULT VIT TAB [Concomitant]

REACTIONS (2)
  - Anxiety [None]
  - Nervousness [None]
